FAERS Safety Report 7388491-8 (Version None)
Quarter: 2011Q2

REPORT INFORMATION
  Report Type: 
  Country: None (occurrence: None)
  Receive Date: 20110401
  Receipt Date: 20110330
  Transmission Date: 20111010
  Serious: Yes (Other)
  Sender: FDA-Public Use
  Company Number: US-BRISTOL-MYERS SQUIBB COMPANY-15610116

PATIENT
  Age: 46 Year
  Sex: Male
  Weight: 100 kg

DRUGS (8)
  1. CLONAZEPAM [Concomitant]
  2. ROPINIROLE [Concomitant]
  3. FLEXERIL [Concomitant]
  4. CRESTOR [Concomitant]
  5. ALBUTEROL INHALER [Concomitant]
  6. ONGLYZA [Suspect]
     Indication: GLUCOSE TOLERANCE IMPAIRED
     Dates: start: 20100930
  7. LISINOPRIL [Concomitant]
  8. PROVIGIL [Concomitant]

REACTIONS (2)
  - BLOOD PRESSURE INCREASED [None]
  - HEART RATE INCREASED [None]
